FAERS Safety Report 25475152 (Version 1)
Quarter: 2025Q2

REPORT INFORMATION
  Report Type: Spontaneous
  Country: US (occurrence: None)
  Receive Date: 20250622
  Receipt Date: 20250622
  Transmission Date: 20250717
  Serious: Yes (Disabling, Congenital Anomaly, Other)
  Sender: FDA-CTU
  Company Number: None

PATIENT
  Sex: Female

DRUGS (1)
  1. COSMETICS [Suspect]
     Active Substance: COSMETICS

REACTIONS (9)
  - Application site pain [None]
  - Application site erythema [None]
  - Application site irritation [None]
  - Product label issue [None]
  - Suspected counterfeit product [None]
  - Product use complaint [None]
  - Product formulation issue [None]
  - Product advertising issue [None]
  - Exposure to allergen [None]

NARRATIVE: CASE EVENT DATE: 20250620
